FAERS Safety Report 13588442 (Version 1)
Quarter: 2017Q2

REPORT INFORMATION
  Report Type: Spontaneous
  Country: US (occurrence: US)
  Receive Date: 20170529
  Receipt Date: 20170529
  Transmission Date: 20170830
  Serious: No
  Sender: FDA-Public Use
  Company Number: US-BAUSCH-BL-2016-023953

PATIENT
  Age: 13 Year
  Sex: Male

DRUGS (3)
  1. PROLENSA [Suspect]
     Active Substance: BROMFENAC SODIUM
     Indication: CONJUNCTIVITIS
     Route: 047
     Dates: start: 20160922
  2. PAZEO [Concomitant]
     Active Substance: OLOPATADINE HYDROCHLORIDE
     Indication: HYPERSENSITIVITY
     Route: 047
     Dates: start: 20160922
  3. LOTEMAX [Suspect]
     Active Substance: LOTEPREDNOL ETABONATE
     Indication: CONJUNCTIVITIS
     Route: 047
     Dates: start: 20160922

REACTIONS (2)
  - Product use issue [Unknown]
  - Off label use [Unknown]

NARRATIVE: CASE EVENT DATE: 20160922
